FAERS Safety Report 4724244-4 (Version None)
Quarter: 2005Q3

REPORT INFORMATION
  Report Type: 
  Country: None (occurrence: None)
  Receive Date: 20050726
  Receipt Date: 20050715
  Transmission Date: 20060218
  Serious: Yes (Other)
  Sender: FDA-Public Use
  Company Number: US-JNJFOC-20050403700

PATIENT
  Sex: Male
  Weight: 72.7 kg

DRUGS (6)
  1. REMICADE [Suspect]
     Indication: RHEUMATOID ARTHRITIS
     Dosage: 500 MG
     Route: 042
  2. METHOTREXATE [Concomitant]
  3. FOLIC ACID [Concomitant]
  4. FOSAMAX [Concomitant]
  5. VICODIN [Concomitant]
  6. VICODIN [Concomitant]

REACTIONS (7)
  - BLOOD PRESSURE DECREASED [None]
  - BRADYCARDIA [None]
  - DIZZINESS [None]
  - FEELING ABNORMAL [None]
  - HYPERHIDROSIS [None]
  - INFUSION RELATED REACTION [None]
  - PALLOR [None]
